FAERS Safety Report 23092572 (Version 1)
Quarter: 2023Q4

REPORT INFORMATION
  Report Type: Spontaneous
  Country: US (occurrence: US)
  Receive Date: 20231021
  Receipt Date: 20231021
  Transmission Date: 20240110
  Serious: Yes (Life-Threatening, Hospitalization, Other)
  Sender: FDA-Public Use
  Company Number: US-drreddys-SPO/USA/23/0180229

PATIENT
  Age: 59 Year
  Sex: Male

DRUGS (1)
  1. CLOZAPINE [Suspect]
     Active Substance: CLOZAPINE
     Indication: Product used for unknown indication

REACTIONS (5)
  - Psychotic disorder [Recovered/Resolved]
  - Cholinergic rebound syndrome [Recovered/Resolved]
  - Serotonin syndrome [Recovered/Resolved]
  - Withdrawal syndrome [Recovered/Resolved]
  - Suicide attempt [Recovered/Resolved]
